FAERS Safety Report 15489126 (Version 1)
Quarter: 2018Q4

REPORT INFORMATION
  Report Type: Spontaneous
  Country: GB (occurrence: GB)
  Receive Date: 20181011
  Receipt Date: 20181011
  Transmission Date: 20190205
  Serious: Yes (Hospitalization)
  Sender: FDA-Public Use
  Company Number: GB-BAYER-2018-186286

PATIENT
  Age: 53 Year
  Sex: Female
  Weight: 75 kg

DRUGS (1)
  1. GADOVIST [Suspect]
     Active Substance: GADOBUTROL
     Indication: SCAN WITH CONTRAST
     Dosage: 12.5 ML, UNK

REACTIONS (4)
  - Electrocardiogram change [Unknown]
  - Paraesthesia [Unknown]
  - Hypoaesthesia [Unknown]
  - Chest pain [Unknown]

NARRATIVE: CASE EVENT DATE: 20180904
